FAERS Safety Report 5924839-6 (Version None)
Quarter: 2008Q4

REPORT INFORMATION
  Report Type: 
  Country: None (occurrence: None)
  Receive Date: 20081017
  Receipt Date: 20081017
  Transmission Date: 20090506
  Serious: Yes (Hospitalization)
  Sender: FDA-Public Use
  Company Number: None

PATIENT
  Sex: Female
  Weight: 71.81 kg

DRUGS (12)
  1. CISPLATIN [Suspect]
     Dosage: 144 MG
  2. ETOPOSIDE [Suspect]
     Dosage: 181 MG
  3. ACIPHEX [Concomitant]
  4. AMBIEN [Concomitant]
  5. ASMANEX TWISTHALER [Concomitant]
  6. CARAFATE [Concomitant]
  7. FENTANYL CITRATE [Concomitant]
  8. PROCHLORPERAZINE MALEATE [Concomitant]
  9. ROXICODONE [Concomitant]
  10. SPIRVA HANDIHALER [Concomitant]
  11. XANAX [Concomitant]
  12. ZOFRAN [Concomitant]

REACTIONS (17)
  - BLOOD CULTURE POSITIVE [None]
  - BLOOD POTASSIUM DECREASED [None]
  - DEHYDRATION [None]
  - DISEASE COMPLICATION [None]
  - DYSPHAGIA [None]
  - HYPOPHAGIA [None]
  - INSOMNIA [None]
  - MALAISE [None]
  - NAUSEA [None]
  - NEUTROPENIA [None]
  - OESOPHAGITIS [None]
  - PAIN [None]
  - REFUSAL OF TREATMENT BY PATIENT [None]
  - RENAL FAILURE ACUTE [None]
  - STREPTOCOCCAL INFECTION [None]
  - THERAPY RESPONDER [None]
  - VOMITING [None]
